FAERS Safety Report 6294495-9 (Version None)
Quarter: 2009Q3

REPORT INFORMATION
  Report Type: 
  Country: None (occurrence: None)
  Receive Date: 20090803
  Receipt Date: 20090724
  Transmission Date: 20100115
  Serious: Yes (Hospitalization)
  Sender: FDA-Public Use
  Company Number: JP-PFIZER INC-2009198172

PATIENT
  Age: 68 Year

DRUGS (6)
  1. NORVASC [Suspect]
     Indication: HYPERTENSION
     Dosage: 5 MG, UNK
     Route: 048
     Dates: start: 19981207, end: 20090325
  2. ACTOS [Suspect]
     Indication: DIABETES MELLITUS
     Dosage: 15 MG, UNK
     Route: 048
     Dates: start: 20080221, end: 20090325
  3. ALLELOCK [Suspect]
     Indication: RHINITIS ALLERGIC
     Dosage: 5 MG, 2X/DAY
     Route: 048
     Dates: start: 20090319, end: 20090324
  4. ALESION [Concomitant]
     Route: 048
     Dates: start: 20090302, end: 20090301
  5. TRANSAMIN [Concomitant]
     Route: 048
     Dates: start: 20090310, end: 20090315
  6. MEDICON [Concomitant]
     Route: 048
     Dates: start: 20090310, end: 20090315

REACTIONS (2)
  - ANGIOEDEMA [None]
  - PHOTOSENSITIVITY REACTION [None]
